FAERS Safety Report 8336110-6 (Version None)
Quarter: 2012Q1

REPORT INFORMATION
  Report Type: 
  Country: None (occurrence: None)
  Receive Date: 20120329
  Receipt Date: 20091211
  Transmission Date: 20120608
  Serious: Yes (Other)
  Sender: FDA-Public Use
  Company Number: PHEH2009US16346

PATIENT
  Age: 80 Year
  Sex: Male

DRUGS (2)
  1. EXELON [Suspect]
     Dosage: 9.5 MG, QD, TRANSDERMAL, 4.6  MG, TRANSDERMAL
     Route: 062
     Dates: start: 20091110
  2. EXELON [Suspect]
     Dosage: 9.5 MG, QD, TRANSDERMAL, 4.6  MG, TRANSDERMAL
     Route: 062
     Dates: start: 20090911, end: 20091109

REACTIONS (2)
  - APPLICATION SITE IRRITATION [None]
  - CONFUSIONAL STATE [None]
